FAERS Safety Report 8145103-3 (Version None)
Quarter: 2012Q1

REPORT INFORMATION
  Report Type: 
  Country: None (occurrence: None)
  Receive Date: 20120217
  Receipt Date: 20120210
  Transmission Date: 20120608
  Serious: Yes (Hospitalization, Disabling, Other)
  Sender: FDA-Public Use
  Company Number: PHEH2012US003029

PATIENT
  Sex: Female

DRUGS (17)
  1. CREAM BASE NO. 33 BULK [Concomitant]
     Indication: MIGRAINE
  2. DESYREL [Concomitant]
     Indication: INSOMNIA
  3. LEXAPRO [Concomitant]
     Dosage: 2 DF, QD
     Route: 048
  4. NEURONTIN [Concomitant]
     Indication: MIGRAINE
  5. MAG-OX [Concomitant]
     Indication: MIGRAINE
     Dosage: 1 DF, QD
  6. GILENYA [Suspect]
     Indication: MULTIPLE SCLEROSIS
     Dosage: 0.5 MG, QD
     Route: 048
     Dates: start: 20120201, end: 20120201
  7. VITAMIN D [Concomitant]
     Indication: VITAMIN D DEFICIENCY
     Dosage: 2 DF, QD
     Route: 048
  8. EMLA [Concomitant]
  9. AMERGE [Concomitant]
     Indication: MIGRAINE
     Dosage: 1 DF, PRN
  10. TOPAMAX [Concomitant]
     Indication: MIGRAINE
     Dosage: 1 DF, QD
  11. COENZYME Q10 [Concomitant]
     Indication: MIGRAINE
     Dosage: 2 DF, QD
     Route: 048
  12. MULTI-VITAMINS [Concomitant]
     Dosage: 1 DF, QD
     Route: 048
  13. NEURONTIN [Concomitant]
     Indication: MUSCLE SPASMS
  14. CALAN [Concomitant]
     Dosage: 1 DF, QD
     Route: 048
  15. WELLBATRIN [Concomitant]
     Dosage: 1 DF, BID
     Route: 048
  16. KLONOPIN [Concomitant]
     Dosage: 0.5 MG, UNK
  17. MAXALT-MLT [Concomitant]
     Indication: MIGRAINE
     Dosage: 1 DF, PRN
     Route: 048

REACTIONS (9)
  - DIZZINESS [None]
  - LETHARGY [None]
  - VISUAL IMPAIRMENT [None]
  - HEADACHE [None]
  - CHEST DISCOMFORT [None]
  - PRESYNCOPE [None]
  - FATIGUE [None]
  - UNRESPONSIVE TO STIMULI [None]
  - FEELING ABNORMAL [None]
